FAERS Safety Report 6141104-5 (Version None)
Quarter: 2009Q2

REPORT INFORMATION
  Report Type: 
  Country: None (occurrence: None)
  Receive Date: 20090402
  Receipt Date: 20090330
  Transmission Date: 20091009
  Serious: Yes (Death)
  Sender: FDA-Public Use
  Company Number: PHHY2009US11801

PATIENT
  Age: 61 Year
  Sex: Male

DRUGS (5)
  1. CYCLOSPORINE [Suspect]
     Indication: LUNG TRANSPLANT
     Dosage: UNK
  2. CORTICOSTEROIDS FOR SYSTEMIC USE [Concomitant]
     Indication: LUNG TRANSPLANT
     Dosage: UNK
  3. DACLIZUMAB [Concomitant]
     Indication: LUNG TRANSPLANT
     Dosage: UNK
  4. ALBENDAZOLE [Concomitant]
     Indication: STRONGYLOIDIASIS
     Dosage: 400 MG, Q12H
  5. IVERMECTIN [Concomitant]
     Indication: STRONGYLOIDIASIS
     Dosage: 9 MG, QD

REACTIONS (3)
  - LUNG DISORDER [None]
  - PSEUDOMONAS INFECTION [None]
  - SEPSIS [None]
